FAERS Safety Report 9455089 (Version 1)
Quarter: 2013Q3

REPORT INFORMATION
  Report Type: Spontaneous
  Country: US (occurrence: US)
  Receive Date: 20130813
  Receipt Date: 20130813
  Transmission Date: 20140515
  Serious: No
  Sender: FDA-Public Use
  Company Number: US-BIOGENIDEC-2013BI074878

PATIENT
  Sex: Female

DRUGS (1)
  1. TYSABRI [Suspect]
     Indication: MULTIPLE SCLEROSIS
     Route: 042
     Dates: start: 20090127, end: 20130718

REACTIONS (5)
  - Memory impairment [Unknown]
  - Confusional state [Unknown]
  - Nervousness [Unknown]
  - Ill-defined disorder [Unknown]
  - Fatigue [Unknown]
